FAERS Safety Report 6326245-1 (Version None)
Quarter: 2009Q3

REPORT INFORMATION
  Report Type: 
  Country: None (occurrence: None)
  Receive Date: 20090820
  Receipt Date: 20090808
  Transmission Date: 20100115
  Serious: Yes (Hospitalization, Other)
  Sender: FDA-Public Use
  Company Number: 2009AP003208

PATIENT
  Age: 54 Year
  Sex: Male

DRUGS (4)
  1. MYCOPHENOLATE MOFETIL [Suspect]
     Indication: DEMYELINATING POLYNEUROPATHY
  2. PREDNISONE TAB [Suspect]
     Indication: DEMYELINATING POLYNEUROPATHY
  3. WARFARIN SODIUM [Suspect]
     Indication: PROTEIN S DEFICIENCY
  4. IMMUNOGLOBULINS [Concomitant]

REACTIONS (6)
  - CALCIPHYLAXIS [None]
  - SKIN PLAQUE [None]
  - SKIN ULCER [None]
  - VASCULAR CALCIFICATION [None]
  - WOUND INFECTION FUNGAL [None]
  - WOUND INFECTION PSEUDOMONAS [None]
